FAERS Safety Report 5844830-8 (Version None)
Quarter: 2008Q3

REPORT INFORMATION
  Report Type: 
  Country: None (occurrence: None)
  Receive Date: 20080812
  Receipt Date: 20080730
  Transmission Date: 20090109
  Serious: Yes (Hospitalization, Other)
  Sender: FDA-Public Use
  Company Number: 2007-02333

PATIENT
  Age: 70 Year
  Sex: Male

DRUGS (12)
  1. VELCADE [Suspect]
     Indication: MULTIPLE MYELOMA
     Dosage: 3.50 MG, INTRAVENOUS
     Route: 042
     Dates: start: 20070327, end: 20070518
  2. SPIRIVA [Concomitant]
  3. CRESTOR [Concomitant]
  4. METOPROLOL TARTRATE [Concomitant]
  5. WARFARIN SODIUM [Concomitant]
  6. OMEPRAZOLE [Concomitant]
  7. PLENDIL [Concomitant]
  8. SYMBICORT TURBUHALER (FORMOTEROL FUMARATE, BUDESONIDE) [Concomitant]
  9. ALVEDON (PARACETAMOL) [Concomitant]
  10. ACETYLCYSTEINE [Concomitant]
  11. DOXYFERM (DOXYCYCLINE MONOHYDRATE) [Concomitant]
  12. COZAAR [Concomitant]

REACTIONS (4)
  - ATRIAL FIBRILLATION [None]
  - BRADYCARDIA [None]
  - BRONCHITIS CHRONIC [None]
  - PRESYNCOPE [None]
